FAERS Safety Report 23597055 (Version 1)
Quarter: 2024Q1

REPORT INFORMATION
  Report Type: Spontaneous
  Country: NL (occurrence: NL)
  Receive Date: 20240305
  Receipt Date: 20240305
  Transmission Date: 20240410
  Serious: Yes (Other)
  Sender: FDA-Public Use
  Company Number: None

PATIENT
  Age: 24 Year
  Sex: Female

DRUGS (1)
  1. IVERMECTIN [Suspect]
     Active Substance: IVERMECTIN
     Indication: Acarodermatitis
     Dosage: 6 PIECES ONE-TIME/ BRAND NAME NOT SPECIFIED
     Route: 065
     Dates: start: 20240112, end: 20240116

REACTIONS (3)
  - Angioedema [Unknown]
  - Erythema of eyelid [Unknown]
  - Eczema [Unknown]
